FAERS Safety Report 8544859-5 (Version None)
Quarter: 2012Q3

REPORT INFORMATION
  Report Type: 
  Country: None (occurrence: None)
  Receive Date: 20120727
  Receipt Date: 20120719
  Transmission Date: 20120928
  Serious: Yes (Hospitalization)
  Sender: FDA-Public Use
  Company Number: KR-JNJFOC-20120508147

PATIENT
  Age: 49 Year
  Sex: Female

DRUGS (6)
  1. UNKNOWN MEDICATION [Concomitant]
     Route: 065
  2. UNSPECIFED MEDICATIONS [Concomitant]
     Route: 065
  3. ATORVASTATIN [Concomitant]
     Route: 065
  4. MACPERAN [Concomitant]
     Route: 065
  5. DURAGESIC-100 [Suspect]
     Indication: PAIN
     Route: 062
  6. NORVASC [Concomitant]
     Route: 065

REACTIONS (9)
  - TOXIC ENCEPHALOPATHY [None]
  - INFARCTION [None]
  - INCORRECT DRUG ADMINISTRATION DURATION [None]
  - NAUSEA [None]
  - BRAIN INJURY [None]
  - DYSPNOEA [None]
  - OVERDOSE [None]
  - VOMITING [None]
  - COMA [None]
